FAERS Safety Report 5163764-8 (Version None)
Quarter: 2006Q4

REPORT INFORMATION
  Report Type: 
  Country: None (occurrence: None)
  Receive Date: 20061204
  Receipt Date: 20061025
  Transmission Date: 20070319
  Serious: Yes (Life-Threatening)
  Sender: FDA-Public Use
  Company Number: 2006AP05171

PATIENT
  Age: 76 Year
  Sex: Male
  Weight: 42.5 kg

DRUGS (6)
  1. ANAPEINE [Suspect]
     Indication: POSTOPERATIVE ANALGESIA
     Route: 008
     Dates: start: 20060706, end: 20060711
  2. FENTANYL CITRATE [Suspect]
     Indication: POSTOPERATIVE ANALGESIA
     Route: 008
     Dates: start: 20060706, end: 20060711
  3. SEVOFLURANE [Concomitant]
     Indication: GENERAL ANAESTHESIA
     Route: 055
     Dates: start: 20060706, end: 20060706
  4. VECURONIUM BROMIDE [Concomitant]
     Indication: GENERAL ANAESTHESIA
     Route: 042
     Dates: start: 20060706, end: 20060706
  5. PROPOFOL [Concomitant]
     Indication: GENERAL ANAESTHESIA
     Route: 042
     Dates: start: 20060706, end: 20060706
  6. FENTANYL CITRATE [Concomitant]
     Indication: GENERAL ANAESTHESIA
     Route: 042
     Dates: start: 20060706, end: 20060706

REACTIONS (5)
  - AMYOTROPHIC LATERAL SCLEROSIS [None]
  - BLOOD ALKALINE PHOSPHATASE [None]
  - CARDIO-RESPIRATORY ARREST [None]
  - INTERVERTEBRAL DISC PROTRUSION [None]
  - RESPIRATORY FAILURE [None]
